FAERS Safety Report 14664967 (Version 1)
Quarter: 2018Q1

REPORT INFORMATION
  Report Type: Spontaneous
  Country: US (occurrence: US)
  Receive Date: 20180320
  Receipt Date: 20180320
  Transmission Date: 20180509
  Serious: Yes (Hospitalization)
  Sender: FDA-Public Use
  Company Number: None

PATIENT
  Age: 41 Year
  Sex: Male
  Weight: 101 kg

DRUGS (1)
  1. DAPAGLIFLOZIN PROPANEDIOL. [Suspect]
     Active Substance: DAPAGLIFLOZIN PROPANEDIOL
     Indication: DIABETES MELLITUS
     Route: 048
     Dates: start: 20170221, end: 20171013

REACTIONS (6)
  - Pancreatitis acute [None]
  - Metabolic acidosis [None]
  - Hypertriglyceridaemia [None]
  - Sepsis [None]
  - Duodenitis [None]
  - Diabetic ketoacidosis [None]

NARRATIVE: CASE EVENT DATE: 20171013
